FAERS Safety Report 8788982 (Version 4)
Quarter: 2013Q1

REPORT INFORMATION
  Report Type: Spontaneous
  Country: US (occurrence: US)
  Receive Date: 20120915
  Receipt Date: 20130116
  Transmission Date: 20140127
  Serious: Yes (Hospitalization)
  Sender: FDA-Public Use
  Company Number: US-009507513-1209USA003020

PATIENT
  Age: 78 None
  Sex: Male

DRUGS (2)
  1. COZAAR [Suspect]
     Indication: HYPERTENSION
     Dosage: 50 MG, UNK
     Route: 048
     Dates: start: 20110412
  2. COZAAR [Suspect]
     Dosage: 100 MG, QD
     Route: 048
     Dates: start: 20120423, end: 20120829

REACTIONS (9)
  - Hypertensive crisis [Recovering/Resolving]
  - Blepharospasm [Recovering/Resolving]
  - Pain in jaw [Recovering/Resolving]
  - Transient ischaemic attack [Unknown]
  - Blood phosphorus decreased [Unknown]
  - Thrombocytopenia [Recovering/Resolving]
  - Paraesthesia [Recovering/Resolving]
  - Hypertension [Recovering/Resolving]
  - Drug ineffective [Unknown]
